FAERS Safety Report 5286639-2 (Version None)
Quarter: 2007Q2

REPORT INFORMATION
  Report Type: 
  Country: None (occurrence: None)
  Receive Date: 20070404
  Receipt Date: 20070330
  Transmission Date: 20071010
  Serious: Yes (Hospitalization)
  Sender: FDA-Public Use
  Company Number: FR-GLAXOSMITHKLINE-B0464502A

PATIENT
  Age: 65 Year
  Sex: Female
  Weight: 55 kg

DRUGS (3)
  1. DEROXAT [Suspect]
     Indication: DEPRESSION
     Dosage: 40MG PER DAY
     Route: 048
     Dates: end: 20061218
  2. BROMAZEPAM [Concomitant]
     Dosage: .25UNIT FOUR TIMES PER DAY
     Route: 048
  3. PIPORTIL [Concomitant]
     Dosage: 100MG MONTHLY
     Route: 030

REACTIONS (5)
  - BLOOD CREATINE PHOSPHOKINASE INCREASED [None]
  - CONVULSION [None]
  - FALL [None]
  - HYPONATRAEMIA [None]
  - RHABDOMYOLYSIS [None]
